FAERS Safety Report 5225015-5 (Version None)
Quarter: 2007Q1

REPORT INFORMATION
  Report Type: 
  Country: None (occurrence: None)
  Receive Date: 20070126
  Receipt Date: 20070119
  Transmission Date: 20070707
  Serious: Yes (Life-Threatening)
  Sender: FDA-Public Use
  Company Number: 2006-152306-NL

PATIENT
  Age: 26 Year
  Sex: Female

DRUGS (14)
  1. VECURONIUM BROMIDE [Suspect]
     Indication: GENERAL ANAESTHESIA
     Dosage: INTRAVENOUS (NOS)
     Route: 042
     Dates: start: 20061107, end: 20061107
  2. LACTEC [Concomitant]
  3. PROPOFOL [Concomitant]
  4. FENTANYL CITRATE [Concomitant]
  5. AMINOPHYLLINE [Concomitant]
  6. HESPANDER [Concomitant]
  7. ATROPINE SULFATE [Concomitant]
  8. PROCATEROL HCL [Concomitant]
  9. EPINEPHRINE HYDROCHLORIDE [Concomitant]
  10. VASOPRESSIN INJECTION [Concomitant]
  11. METOCLOPRAMIDE [Concomitant]
  12. CEFAZOLIN SODIUM [Concomitant]
  13. SEVOFLURANE [Concomitant]
  14. ISOTONIC SODIUM CHLORIDE SOLUTION [Concomitant]

REACTIONS (3)
  - ANAESTHETIC COMPLICATION [None]
  - ANAPHYLACTIC REACTION [None]
  - DRUG HYPERSENSITIVITY [None]
